FAERS Safety Report 5114297-6 (Version None)
Quarter: 2006Q3

REPORT INFORMATION
  Report Type: 
  Country: None (occurrence: None)
  Receive Date: 20060731
  Receipt Date: 20060629
  Transmission Date: 20061208
  Serious: No
  Sender: FDA-Public Use
  Company Number: 2006PV016659

PATIENT
  Age: 47 Year
  Sex: Male
  Weight: 136.0791 kg

DRUGS (1)
  1. BYETTA [Suspect]
     Indication: WEIGHT DECREASED
     Dosage: 5 MCG;BID; SC
     Route: 058
     Dates: start: 20060615

REACTIONS (2)
  - ANOREXIA [None]
  - HUNGER [None]
